FAERS Safety Report 6098683-6 (Version None)
Quarter: 2009Q1

REPORT INFORMATION
  Report Type: 
  Country: None (occurrence: None)
  Receive Date: 20090302
  Receipt Date: 20090225
  Transmission Date: 20090719
  Serious: Yes (Life-Threatening, Hospitalization, Disabling)
  Sender: FDA-Public Use
  Company Number: GB-CELGENEUS-167-20484-09020284

PATIENT
  Sex: Male

DRUGS (2)
  1. INNOHEP [Suspect]
     Indication: PULMONARY EMBOLISM
     Route: 058
     Dates: start: 20081223, end: 20090203
  2. FERROUS SULFATE TAB [Concomitant]
     Indication: DRUG USE FOR UNKNOWN INDICATION
     Route: 048
     Dates: start: 20081128

REACTIONS (3)
  - COUGH [None]
  - HAEMOPTYSIS [None]
  - PULMONARY HAEMORRHAGE [None]
